FAERS Safety Report 19168946 (Version 1)
Quarter: 2021Q2

REPORT INFORMATION
  Report Type: Spontaneous
  Country: US (occurrence: US)
  Receive Date: 20210422
  Receipt Date: 20210422
  Transmission Date: 20210717
  Serious: No
  Sender: FDA-Public Use
  Company Number: US-TAKEDA-2021TUS024995

PATIENT
  Sex: Female

DRUGS (1)
  1. MOTEGRITY [Suspect]
     Active Substance: PRUCALOPRIDE SUCCINATE
     Indication: CONSTIPATION
     Dosage: 2 MILLIGRAM
     Route: 065
     Dates: start: 2020

REACTIONS (3)
  - Crying [Recovered/Resolved]
  - Feeling abnormal [Recovered/Resolved]
  - Mood altered [Recovered/Resolved]
